FAERS Safety Report 5684922-X (Version None)
Quarter: 2008Q1

REPORT INFORMATION
  Report Type: 
  Country: None (occurrence: None)
  Receive Date: 20080328
  Receipt Date: 20080110
  Transmission Date: 20080703
  Serious: Yes (Life-Threatening, Other)
  Sender: FDA-Public Use
  Company Number: US-BRISTOL-MYERS SQUIBB COMPANY-14018048

PATIENT
  Age: 68 Year
  Sex: Female
  Weight: 54 kg

DRUGS (6)
  1. ERBITUX [Suspect]
     Indication: COLON CANCER METASTATIC
     Route: 042
     Dates: start: 20071211, end: 20071211
  2. IRINOTECAN HCL [Suspect]
     Indication: COLON CANCER METASTATIC
     Route: 042
     Dates: start: 20071211
  3. FOLINIC ACID [Suspect]
     Indication: COLON CANCER METASTATIC
     Route: 042
     Dates: start: 20071211
  4. FLUOROURACIL [Suspect]
     Route: 042
     Dates: start: 20071211
  5. ATIVAN [Concomitant]
  6. COMPAZINE [Concomitant]

REACTIONS (1)
  - ANAPHYLACTIC REACTION [None]
